FAERS Safety Report 5090913-2 (Version None)
Quarter: 2006Q3

REPORT INFORMATION
  Report Type: 
  Country: None (occurrence: None)
  Receive Date: 20060823
  Receipt Date: 20060807
  Transmission Date: 20061208
  Serious: Yes (Hospitalization)
  Sender: FDA-Public Use
  Company Number: US200608002088

PATIENT
  Sex: Female
  Weight: 131.5 kg

DRUGS (1)
  1. ZYPREXA [Suspect]
     Dates: start: 20030801, end: 20050501

REACTIONS (5)
  - BLOOD CHOLESTEROL INCREASED [None]
  - CARDIOVASCULAR DISORDER [None]
  - DIABETES MELLITUS [None]
  - HYPERTENSION [None]
  - OBESITY [None]
